FAERS Safety Report 8204959-6 (Version None)
Quarter: 2012Q1

REPORT INFORMATION
  Report Type: 
  Country: None (occurrence: None)
  Receive Date: 20120309
  Receipt Date: 20120301
  Transmission Date: 20120608
  Serious: Yes (Other)
  Sender: FDA-Public Use
  Company Number: AXC-2011-000522

PATIENT
  Age: 69 Year
  Sex: Female

DRUGS (2)
  1. SERMION /00396401/(NICERGOLINE) UNKNOWN, 5MG [Suspect]
     Indication: CEREBRAL INFARCTION
     Dosage: 15 MG, ORAL
     Route: 048
     Dates: start: 20110406, end: 20110525
  2. URSODIOL [Suspect]
     Indication: CHOLELITHIASIS
     Dosage: 300 MG, QD, ORAL
     Route: 048
     Dates: start: 20111012

REACTIONS (3)
  - THYROXINE FREE DECREASED [None]
  - RHABDOMYOLYSIS [None]
  - HYPOTHYROIDISM [None]
